FAERS Safety Report 14209905 (Version 1)
Quarter: 2017Q4

REPORT INFORMATION
  Report Type: Spontaneous
  Country: US (occurrence: US)
  Receive Date: 20171121
  Receipt Date: 20171121
  Transmission Date: 20180321
  Serious: Yes (Hospitalization, Other)
  Sender: FDA-Public Use
  Company Number: US-BRISTOL-MYERS SQUIBB COMPANY-BMS-2017-103498

PATIENT
  Sex: Female
  Weight: 60.77 kg

DRUGS (1)
  1. ELIQUIS [Suspect]
     Active Substance: APIXABAN
     Indication: CEREBROVASCULAR ACCIDENT PROPHYLAXIS
     Dosage: 5 MG, BID
     Route: 048

REACTIONS (6)
  - Haemothorax [Unknown]
  - Pericardial haemorrhage [Unknown]
  - Feeding disorder [Unknown]
  - Weight decreased [Unknown]
  - Dementia [Unknown]
  - Gastrointestinal haemorrhage [Recovered/Resolved]
